FAERS Safety Report 13795314 (Version 1)
Quarter: 2017Q3

REPORT INFORMATION
  Report Type: Spontaneous
  Country: FR (occurrence: FR)
  Receive Date: 20170726
  Receipt Date: 20170726
  Transmission Date: 20171127
  Serious: Yes (Hospitalization)
  Sender: FDA-Public Use
  Company Number: FR-ASTRAZENECA-2017SE75062

PATIENT
  Age: 25810 Day
  Sex: Female

DRUGS (8)
  1. IOMERON [Suspect]
     Active Substance: IOMEPROL
     Dosage: 350 MG/ML ONE INJECTION
     Route: 042
     Dates: start: 20170615, end: 20170615
  2. DOLIPRANE [Concomitant]
     Active Substance: ACETAMINOPHEN
     Dosage: 500 MG AS NEEDED MAX 6/DAY
     Route: 048
     Dates: start: 20170531
  3. INNOHEP [Concomitant]
     Active Substance: TINZAPARIN SODIUM
     Indication: PULMONARY EMBOLISM
     Dosage: 14 000 IU ANTI-XA/0.7ML
     Route: 058
     Dates: start: 20170601
  4. LOXEN LP [Concomitant]
     Active Substance: NICARDIPINE
     Dosage: 50.0MG UNKNOWN
     Route: 048
     Dates: start: 20170531
  5. INEXIUM [Suspect]
     Active Substance: ESOMEPRAZOLE
     Route: 048
     Dates: start: 20170601, end: 20170621
  6. SKENAN [Concomitant]
     Active Substance: MORPHINE SULFATE
     Dosage: 30.0MG UNKNOWN
     Route: 048
     Dates: start: 20170330
  7. ZOPHREN [Concomitant]
     Active Substance: ONDANSETRON
     Dosage: 8.0MG UNKNOWN
     Route: 048
     Dates: start: 20170607
  8. LASILIX [Concomitant]
     Active Substance: FUROSEMIDE
     Dosage: 40.0MG UNKNOWN
     Route: 048
     Dates: start: 20170601

REACTIONS (1)
  - Drug eruption [Recovered/Resolved]

NARRATIVE: CASE EVENT DATE: 20170618
